FAERS Safety Report 25381570 (Version 1)
Quarter: 2025Q2

REPORT INFORMATION
  Report Type: Spontaneous
  Country: US (occurrence: US)
  Receive Date: 20250531
  Receipt Date: 20250531
  Transmission Date: 20250716
  Serious: No
  Sender: CIPLA
  Company Number: US-CIPLA LTD.-2024US09256

PATIENT

DRUGS (8)
  1. ALBUTEROL [Suspect]
     Active Substance: ALBUTEROL
     Indication: Product used for unknown indication
     Route: 065
     Dates: start: 20240801, end: 202408
  2. ALBUTEROL [Suspect]
     Active Substance: ALBUTEROL
     Route: 065
     Dates: start: 202408
  3. LEVOTHYROXINE [Concomitant]
     Active Substance: LEVOTHYROXINE
     Indication: Hypothyroidism
     Dosage: 150 MICROGRAM, QD
     Route: 065
  4. ALFUZOSIN [Concomitant]
     Active Substance: ALFUZOSIN
     Indication: Prostatic disorder
     Dosage: 10, QD (NOT SURE IF IT WAS MG OR MCG)
     Route: 065
  5. ALLOPURINOL [Concomitant]
     Active Substance: ALLOPURINOL
     Indication: Gout
     Dosage: 300 (UNITS UNSPECIFIED), QD
     Route: 065
  6. MOUNJARO [Concomitant]
     Active Substance: TIRZEPATIDE
     Indication: Blood glucose abnormal
     Route: 065
  7. ROSUVASTATIN [Concomitant]
     Active Substance: ROSUVASTATIN
     Indication: Blood cholesterol abnormal
     Dosage: 10 MILLIGRAM, QD
     Route: 065
  8. ADVAIR HFA [Concomitant]
     Active Substance: FLUTICASONE PROPIONATE\SALMETEROL XINAFOATE
     Indication: Bronchospasm
     Dosage: 500/50 MILLIGRAM, QD
     Route: 065

REACTIONS (3)
  - Incorrect dose administered by device [Unknown]
  - Device delivery system issue [Unknown]
  - Product quality issue [Unknown]

NARRATIVE: CASE EVENT DATE: 20240801
